FAERS Safety Report 9627773 (Version 3)
Quarter: 2014Q2

REPORT INFORMATION
  Report Type: Spontaneous
  Country: US (occurrence: US)
  Receive Date: 20131016
  Receipt Date: 20140408
  Transmission Date: 20141212
  Serious: Yes (Other)
  Sender: FDA-Public Use
  Company Number: US-LUNDBECK-DKLU1092116

PATIENT
  Age: 14 Year
  Sex: Female
  Weight: 44 kg

DRUGS (14)
  1. SABRIL     (TABLET) [Suspect]
     Indication: COMPLEX PARTIAL SEIZURES
     Route: 048
     Dates: start: 20130529
  2. SABRIL     (TABLET) [Suspect]
     Indication: EPILEPSY
     Dates: start: 201304
  3. SABRIL     (TABLET) [Suspect]
  4. SABRIL     (TABLET) [Suspect]
  5. SABRIL     (TABLET) [Suspect]
     Route: 048
     Dates: start: 20130717
  6. SABRIL     (TABLET) [Suspect]
     Route: 048
     Dates: start: 20130717
  7. ONFI [Concomitant]
     Indication: PRODUCT USED FOR UNKNOWN INDICATION
  8. CELEXA TABLETS [Concomitant]
     Indication: PRODUCT USED FOR UNKNOWN INDICATION
     Route: 048
  9. VIMPAT [Concomitant]
     Indication: PRODUCT USED FOR UNKNOWN INDICATION
  10. TRILEPTAL [Concomitant]
     Indication: PRODUCT USED FOR UNKNOWN INDICATION
  11. TRILEPTAL [Concomitant]
  12. TRILEPTAL [Concomitant]
     Route: 048
  13. TRILEPTAL [Concomitant]
     Route: 048
  14. KLONOPIN [Concomitant]
     Indication: PRODUCT USED FOR UNKNOWN INDICATION

REACTIONS (4)
  - Convulsion [Recovering/Resolving]
  - Visual field tests abnormal [Unknown]
  - Headache [Unknown]
  - Abdominal pain upper [Unknown]
